FAERS Safety Report 24293191 (Version 1)
Quarter: 2024Q3

REPORT INFORMATION
  Report Type: Spontaneous
  Country: US (occurrence: None)
  Receive Date: 20240906
  Receipt Date: 20240906
  Transmission Date: 20241017
  Serious: No
  Sender: DOMPE FARMACEUTICI
  Company Number: US-FARMAPROD-202312-3547

PATIENT
  Age: 76 Year
  Sex: Female
  Weight: 89.36 kg

DRUGS (58)
  1. OXERVATE [Suspect]
     Active Substance: CENEGERMIN-BKBJ
     Indication: Neurotrophic keratopathy
     Route: 047
     Dates: start: 20231101, end: 20231227
  2. TOBRADEX ST [Concomitant]
     Active Substance: DEXAMETHASONE\TOBRAMYCIN
     Dosage: 0.3%-0.05%
  3. MOXIFLOXACIN [Concomitant]
     Active Substance: MOXIFLOXACIN
  4. VITAMIN D3 [Concomitant]
     Active Substance: CHOLECALCIFEROL
  5. MAGNESIUM GLUCONATE [Concomitant]
     Active Substance: MAGNESIUM GLUCONATE
  6. CYANOCOBALAMIN\FOLIC ACID\IRON [Concomitant]
     Active Substance: CYANOCOBALAMIN\FOLIC ACID\IRON
  7. FLONASE ALLERGY RELIEF [Concomitant]
     Active Substance: FLUTICASONE PROPIONATE
  8. LODINE [Concomitant]
     Active Substance: ETODOLAC
  9. PRASTERONE [Concomitant]
     Active Substance: PRASTERONE
     Dosage: 10 MG-47 MG
  10. VOLTAREN ARTHRITIS PAIN [Concomitant]
     Active Substance: DICLOFENAC SODIUM
  11. ASPIRIN [Concomitant]
     Active Substance: ASPIRIN
  12. MAALOX MAXIMUM STRENGTH [Concomitant]
  13. VAZALORE [Concomitant]
     Active Substance: ASPIRIN
  14. FISH OIL [Concomitant]
     Active Substance: FISH OIL
     Dosage: 120-180 MG
  15. OMEGA-3-ACID ETHYL ESTERS [Concomitant]
     Active Substance: OMEGA-3-ACID ETHYL ESTERS
  16. ACETAMINOPHEN [Concomitant]
     Active Substance: ACETAMINOPHEN
  17. DICLOFENAC SODIUM [Concomitant]
     Active Substance: DICLOFENAC\DICLOFENAC SODIUM
  18. CELECOXIB [Concomitant]
     Active Substance: CELECOXIB
  19. LIDOCAINE [Concomitant]
     Active Substance: LIDOCAINE
     Dosage: ADHESIVE PATCH
  20. DULOXETINE HYDROCHLORIDE [Concomitant]
     Active Substance: DULOXETINE HYDROCHLORIDE
  21. ROSUVASTATIN CALCIUM [Concomitant]
     Active Substance: ROSUVASTATIN CALCIUM
  22. TRAZODONE HCL [Concomitant]
     Active Substance: TRAZODONE HYDROCHLORIDE
  23. MONTELUKAST SODIUM [Concomitant]
     Active Substance: MONTELUKAST\MONTELUKAST SODIUM
  24. CYCLOBENZAPRINE HYDROCHLORIDE [Concomitant]
     Active Substance: CYCLOBENZAPRINE HYDROCHLORIDE
  25. BENZONATATE [Concomitant]
     Active Substance: BENZONATATE
  26. METFORMIN HYDROCHLORIDE [Concomitant]
     Active Substance: METFORMIN HYDROCHLORIDE
  27. LOSARTAN POTASSIUM [Concomitant]
     Active Substance: LOSARTAN POTASSIUM
  28. SYNTHROID [Concomitant]
     Active Substance: LEVOTHYROXINE SODIUM
  29. HYDROCHLOROTHIAZIDE [Concomitant]
     Active Substance: HYDROCHLOROTHIAZIDE
  30. CLOBETASOL PROPIONATE [Concomitant]
     Active Substance: CLOBETASOL PROPIONATE
  31. KETOCONAZOLE [Concomitant]
     Active Substance: KETOCONAZOLE
  32. FLUCONAZOLE [Concomitant]
     Active Substance: FLUCONAZOLE
  33. TERCONAZOLE [Concomitant]
     Active Substance: TERCONAZOLE
     Dosage: WITH APPLICATOR
  34. TRELEGY ELLIPTA [Concomitant]
     Active Substance: FLUTICASONE FUROATE\UMECLIDINIUM BROMIDE\VILANTEROL TRIFENATATE
     Dosage: 100-62.5 BLISTER WITH DEVICE
  35. PANTOPRAZOLE SODIUM [Concomitant]
     Active Substance: PANTOPRAZOLE SODIUM
  36. KLOR-CON M20 [Concomitant]
     Active Substance: POTASSIUM CHLORIDE
     Dosage: PARTICLES
  37. ETODOLAC [Concomitant]
     Active Substance: ETODOLAC
  38. FLAREX [Concomitant]
     Active Substance: FLUOROMETHOLONE ACETATE
  39. SENNA-S [Concomitant]
     Active Substance: DOCUSATE SODIUM\SENNOSIDES
     Dosage: 8.6 MG-50 MG
  40. ATROPINE SULFATE [Concomitant]
     Active Substance: ATROPINE SULFATE
  41. OYSTER SHELL CALCIUM W-VIT D [Concomitant]
  42. ALBUTEROL SULFATE [Concomitant]
     Active Substance: ALBUTEROL SULFATE
     Dosage: HYDROFLUOROALKANE, AEROSOL WITH ADAPTER
  43. FLUTICASONE PROPIONATE [Concomitant]
     Active Substance: FLUTICASONE PROPIONATE
     Dosage: SUSPENSION
  44. FERROUS SULFATE [Concomitant]
     Active Substance: FERROUS SULFATE
     Dosage: 325 (65) MG
  45. ZIRGAN [Concomitant]
     Active Substance: GANCICLOVIR
  46. ALENDRONATE SODIUM [Concomitant]
     Active Substance: ALENDRONATE SODIUM
  47. BISACODYL [Concomitant]
     Active Substance: BISACODYL
  48. LOPERAMIDE [Concomitant]
     Active Substance: LOPERAMIDE
  49. AZELASTINE HYDROCHLORIDE [Concomitant]
     Active Substance: AZELASTINE HYDROCHLORIDE
     Dosage: SPRAY WITH PUMP
  50. VALACYCLOVIR [Concomitant]
     Active Substance: VALACYCLOVIR HYDROCHLORIDE
     Route: 048
  51. PREGABALIN [Concomitant]
     Active Substance: PREGABALIN
  52. PRIMIDONE [Concomitant]
     Active Substance: PRIMIDONE
  53. GATIFLOXACIN [Concomitant]
     Active Substance: GATIFLOXACIN
  54. DOXYCYCLINE HYCLATE [Concomitant]
     Active Substance: DOXYCYCLINE HYCLATE
     Route: 048
  55. SINGULAIR [Concomitant]
     Active Substance: MONTELUKAST SODIUM
  56. HYDROCODONE [Concomitant]
     Active Substance: HYDROCODONE
  57. ASPIRIN [Concomitant]
     Active Substance: ASPIRIN
  58. VITAMIN B12 [Concomitant]
     Active Substance: CYANOCOBALAMIN

REACTIONS (3)
  - Therapy interrupted [Unknown]
  - Sinusitis [Recovering/Resolving]
  - Therapy partial responder [Unknown]

NARRATIVE: CASE EVENT DATE: 20231129
